FAERS Safety Report 17166619 (Version 1)
Quarter: 2019Q4

REPORT INFORMATION
  Report Type: Other
  Country: US (occurrence: US)
  Receive Date: 20191217
  Receipt Date: 20191217
  Transmission Date: 20200122
  Serious: No
  Sender: FDA-Public Use
  Company Number: US-AMAG PHARMACEUTICALS, INC.-AMAG201905512

PATIENT
  Age: 35 Year
  Sex: Female

DRUGS (4)
  1. MAKENA [Suspect]
     Active Substance: HYDROXYPROGESTERONE CAPROATE
     Indication: PREMATURE DELIVERY
     Route: 058
     Dates: start: 20190701, end: 20190719
  2. DICLEGIS [Concomitant]
     Active Substance: DOXYLAMINE SUCCINATE\PYRIDOXINE HYDROCHLORIDE
     Indication: MORNING SICKNESS
     Dates: start: 20190425, end: 20190725
  3. ASPIRIN. [Concomitant]
     Active Substance: ASPIRIN
     Indication: PRE-ECLAMPSIA
     Dates: start: 20190701, end: 20190725
  4. PRENATAL VITAMINS [Concomitant]
     Active Substance: VITAMINS
     Indication: PREGNANCY
     Dates: start: 20190425, end: 20190725

REACTIONS (3)
  - Injection site pruritus [Unknown]
  - Injection site rash [Unknown]
  - Product dose omission [Unknown]

NARRATIVE: CASE EVENT DATE: 20190714
